FAERS Safety Report 6220898-4 (Version None)
Quarter: 2009Q2

REPORT INFORMATION
  Report Type: 
  Country: None (occurrence: None)
  Receive Date: 20090610
  Receipt Date: 20090529
  Transmission Date: 20091009
  Serious: Yes (Hospitalization)
  Sender: FDA-Public Use
  Company Number: SE-PFIZER INC-2009220046

PATIENT
  Age: 76 Year

DRUGS (12)
  1. DALACIN [Suspect]
     Indication: ABSCESS INTESTINAL
     Dosage: UNK
     Route: 048
     Dates: start: 20090301, end: 20090330
  2. CIPROFLOXACIN HCL [Suspect]
     Indication: ABSCESS INTESTINAL
     Dosage: UNK
     Route: 048
     Dates: start: 20090301, end: 20090330
  3. OXYNORM [Concomitant]
     Route: 065
  4. LIPITOR [Concomitant]
     Route: 065
  5. GLUCOSAMINE [Concomitant]
     Route: 065
  6. ZOLPIDEM [Concomitant]
     Route: 065
  7. BUPRENORPHINE [Concomitant]
     Route: 065
  8. WARFARIN SODIUM [Concomitant]
     Route: 065
  9. DIAZEPAM [Concomitant]
     Route: 065
  10. ISOPTIN [Concomitant]
     Route: 065
  11. PREDNISOLONE [Concomitant]
     Route: 065
  12. COMBIVENT [Concomitant]
     Route: 065

REACTIONS (1)
  - ANGIOEDEMA [None]
